FAERS Safety Report 25192437 (Version 1)
Quarter: 2025Q2

REPORT INFORMATION
  Report Type: Spontaneous
  Country: US (occurrence: None)
  Receive Date: 20250414
  Receipt Date: 20250414
  Transmission Date: 20250717
  Serious: Yes (Death)
  Sender: FDA-CTU
  Company Number: None

PATIENT
  Age: 49 Year
  Sex: Female
  Weight: 125.5 kg

DRUGS (13)
  1. CEFTRIAXONE [Suspect]
     Active Substance: CEFTRIAXONE
  2. MAGNESIUM SULFATE [Concomitant]
     Active Substance: MAGNESIUM SULFATE
  3. ACETAMINOPHEN [Concomitant]
     Active Substance: ACETAMINOPHEN
  4. BUMETANIDE [Concomitant]
     Active Substance: BUMETANIDE
  5. BUPROPION [Concomitant]
     Active Substance: BUPROPION
  6. LACTULOSE [Concomitant]
     Active Substance: LACTULOSE
  7. METRONIDAZOLE [Concomitant]
     Active Substance: METRONIDAZOLE
  8. NYSTATIN [Concomitant]
     Active Substance: NYSTATIN
  9. PANTOPRAZOLE [Concomitant]
     Active Substance: PANTOPRAZOLE
  10. ZOSYN [Concomitant]
     Active Substance: PIPERACILLIN SODIUM\TAZOBACTAM SODIUM
  11. POTASSIUM CHLORIDE [Concomitant]
     Active Substance: POTASSIUM CHLORIDE
  12. RIFAXIMIN [Concomitant]
     Active Substance: RIFAXIMIN
  13. SPIRONOLACTONE [Concomitant]
     Active Substance: SPIRONOLACTONE

REACTIONS (6)
  - Cardiac arrest [None]
  - Aspiration [None]
  - Pneumonia [None]
  - Asthenia [None]
  - Chronic hepatic failure [None]
  - Cirrhosis alcoholic [None]
